FAERS Safety Report 24156060 (Version 1)
Quarter: 2024Q3

REPORT INFORMATION
  Report Type: Other
  Country: US (occurrence: US)
  Receive Date: 20240731
  Receipt Date: 20240731
  Transmission Date: 20241017
  Serious: Yes (Life-Threatening, Hospitalization)
  Sender: B BRAUN
  Company Number: US-B.Braun Medical Inc.-2159775

PATIENT
  Age: 18 Year
  Sex: Female

DRUGS (2)
  1. ACETAMINOPHEN [Suspect]
     Active Substance: ACETAMINOPHEN
     Indication: Suicide attempt
  2. AMLODIPINE [Suspect]
     Active Substance: AMLODIPINE BESYLATE

REACTIONS (6)
  - Intentional overdose [Unknown]
  - Harlequin syndrome [Unknown]
  - Cardiogenic shock [Unknown]
  - Vasoplegia syndrome [Unknown]
  - Non-cardiogenic pulmonary oedema [Unknown]
  - Drug abuse [Unknown]
